FAERS Safety Report 18581913 (Version 1)
Quarter: 2020Q4

REPORT INFORMATION
  Report Type: Spontaneous
  Country: US (occurrence: US)
  Receive Date: 20201204
  Receipt Date: 20201204
  Transmission Date: 20210114
  Serious: No
  Sender: FDA-Public Use
  Company Number: US-BEH-2020125601

PATIENT
  Sex: Female

DRUGS (4)
  1. HUMATE-P [Suspect]
     Active Substance: HUMAN COAGULATION FACTOR VIII/VON WILLEBRAND FACTOR COMPLEX
     Indication: VON WILLEBRAND^S DISEASE
     Dosage: 3000 INTERNATIONAL UNIT (939 UNITS), PRN
     Route: 042
     Dates: start: 202009
  2. HUMATE-P [Suspect]
     Active Substance: HUMAN COAGULATION FACTOR VIII/VON WILLEBRAND FACTOR COMPLEX
     Indication: VON WILLEBRAND^S DISEASE
     Dosage: 3000 INTERNATIONAL UNIT (939 UNITS), PRN
     Route: 042
     Dates: start: 202009
  3. HUMATE-P [Suspect]
     Active Substance: HUMAN COAGULATION FACTOR VIII/VON WILLEBRAND FACTOR COMPLEX
     Indication: COAGULOPATHY
     Dosage: 3000 INTERNATIONAL UNIT (1849 UNITS), PRN
     Route: 042
     Dates: start: 202009
  4. HUMATE-P [Suspect]
     Active Substance: HUMAN COAGULATION FACTOR VIII/VON WILLEBRAND FACTOR COMPLEX
     Indication: COAGULOPATHY
     Dosage: 3000 INTERNATIONAL UNIT (1849 UNITS), PRN
     Route: 042
     Dates: start: 202009

REACTIONS (2)
  - No adverse event [Unknown]
  - Incorrect dose administered [Unknown]
